FAERS Safety Report 6336377-X (Version None)
Quarter: 2009Q3

REPORT INFORMATION
  Report Type: 
  Country: None (occurrence: None)
  Receive Date: 20090901
  Receipt Date: 20090708
  Transmission Date: 20100115
  Serious: Yes (Other)
  Sender: FDA-Public Use
  Company Number: US-BAYER-200921669NA

PATIENT
  Age: 42 Year
  Sex: Female
  Weight: 99 kg

DRUGS (15)
  1. MAGNEVIST [Suspect]
     Indication: NUCLEAR MAGNETIC RESONANCE IMAGING BRAIN
     Dosage: AS USED: 15 ML
     Route: 042
     Dates: start: 20060616, end: 20060616
  2. OMNISCAN [Suspect]
     Indication: NUCLEAR MAGNETIC RESONANCE IMAGING ABDOMINAL
     Dosage: AS USED: 40 ML
     Route: 042
     Dates: start: 20050607, end: 20050607
  3. OMNISCAN [Suspect]
     Dosage: AS USED: 10 ML
     Dates: start: 20080108, end: 20080108
  4. OMNISCAN [Suspect]
     Dosage: AS USED: 15 ML
     Dates: start: 20060619, end: 20060619
  5. OPTIMARK [Suspect]
  6. MULTIHANCE [Suspect]
  7. PROHANCE [Suspect]
  8. EPOGEN [Concomitant]
  9. RENAGEL [Concomitant]
  10. ZEMPLAR [Concomitant]
  11. WARFARIN SODIUM [Concomitant]
  12. CELLCEPT [Concomitant]
  13. MEGESTROL ACETATE [Concomitant]
  14. SEVELAMER [Concomitant]
  15. METHADONE [Concomitant]

REACTIONS (18)
  - ATROPHY [None]
  - DRY SKIN [None]
  - ERYTHEMA [None]
  - EXFOLIATIVE RASH [None]
  - FIBROSIS [None]
  - HYPOAESTHESIA [None]
  - MUSCLE TIGHTNESS [None]
  - MUSCULAR WEAKNESS [None]
  - NEPHROGENIC SYSTEMIC FIBROSIS [None]
  - OEDEMA [None]
  - OEDEMA PERIPHERAL [None]
  - PAIN [None]
  - PRURITUS [None]
  - SKIN DISCOLOURATION [None]
  - SKIN HYPERPIGMENTATION [None]
  - SKIN HYPERTROPHY [None]
  - SKIN HYPOPIGMENTATION [None]
  - SKIN INDURATION [None]
